FAERS Safety Report 21915663 (Version 1)
Quarter: 2023Q1

REPORT INFORMATION
  Report Type: Spontaneous
  Country: US (occurrence: US)
  Receive Date: 20230126
  Receipt Date: 20230126
  Transmission Date: 20230418
  Serious: Yes (Other)
  Sender: FDA-Public Use
  Company Number: US-ANIPHARMA-2023-US-001833

PATIENT
  Age: 61 Year
  Sex: Male

DRUGS (2)
  1. CASODEX [Suspect]
     Active Substance: BICALUTAMIDE
     Indication: Product used for unknown indication
     Route: 065
     Dates: start: 20201201
  2. XTANDI [Suspect]
     Active Substance: ENZALUTAMIDE
     Route: 065
     Dates: start: 20201201, end: 20221130

REACTIONS (27)
  - Scratch [Unknown]
  - Hair growth abnormal [Unknown]
  - Swelling [Recovering/Resolving]
  - Oedema peripheral [Recovering/Resolving]
  - General physical condition abnormal [Unknown]
  - Skin atrophy [Unknown]
  - Weight decreased [Recovered/Resolved]
  - Fatigue [Not Recovered/Not Resolved]
  - Memory impairment [Not Recovered/Not Resolved]
  - Head discomfort [Unknown]
  - Weight increased [Unknown]
  - Renal disorder [Unknown]
  - Gynaecomastia [Unknown]
  - Testicular retraction [Unknown]
  - Coronavirus infection [Unknown]
  - Blood urine present [Unknown]
  - Asthenia [Unknown]
  - Lymphadenopathy [Recovered/Resolved]
  - Oedema [Recovered/Resolved]
  - Renal failure [Recovered/Resolved]
  - Flank pain [Unknown]
  - Haematuria [Unknown]
  - Dysuria [Unknown]
  - Pollakiuria [Unknown]
  - Micturition urgency [Unknown]
  - Hot flush [Unknown]
  - Alopecia [Unknown]
